FAERS Safety Report 5424791-6 (Version None)
Quarter: 2007Q3

REPORT INFORMATION
  Report Type: 
  Country: None (occurrence: None)
  Receive Date: 20070824
  Receipt Date: 20070816
  Transmission Date: 20080115
  Serious: Yes (Other)
  Sender: FDA-Public Use
  Company Number: US-AMGEN-KDL226508

PATIENT
  Sex: Male
  Weight: 137.1 kg

DRUGS (14)
  1. ENBREL [Suspect]
     Indication: RHEUMATOID ARTHRITIS
     Route: 058
     Dates: start: 20070228
  2. METHOTREXATE SODIUM [Concomitant]
     Dates: start: 20000101
  3. FOLIC ACID [Concomitant]
     Route: 048
  4. SIMVASTATIN [Concomitant]
     Route: 048
  5. MIRTAZAPINE [Concomitant]
     Route: 048
  6. DILTIAZEM [Concomitant]
  7. HYDROCODONE BITARTRATE + ACETAMINOPHEN [Concomitant]
     Route: 048
  8. HYDROCHLOROTHIAZIDE [Concomitant]
     Route: 048
  9. ETODOLAC [Concomitant]
     Route: 048
  10. OLANZAPINE [Concomitant]
     Route: 048
  11. FLUNISOLIDE [Concomitant]
     Route: 045
  12. TESTOSTERONE CIPIONATE [Concomitant]
  13. BUPROPION HYDROCHLORIDE [Concomitant]
     Route: 048
  14. MICONAZOLE NITRATE [Concomitant]
     Route: 061

REACTIONS (6)
  - ATRIAL FIBRILLATION [None]
  - HYPERTENSION [None]
  - INJECTION SITE ERYTHEMA [None]
  - INJECTION SITE SWELLING [None]
  - MELANOCYTIC NAEVUS [None]
  - RHEUMATOID ARTHRITIS [None]
